FAERS Safety Report 4817799-2 (Version None)
Quarter: 2005Q3

REPORT INFORMATION
  Report Type: 
  Country: None (occurrence: None)
  Receive Date: 20050929
  Receipt Date: 20050718
  Transmission Date: 20060218
  Serious: No
  Sender: FDA-Public Use
  Company Number: 05P-163-0305997-00

PATIENT
  Age: 55 Year
  Sex: Female

DRUGS (9)
  1. HUMIRA [Suspect]
     Indication: RHEUMATOID ARTHRITIS
     Dosage: 20 MG, 1 IN 1 M, SUBCUTANEOUS; 40 MG, 1IN 2 WK, SUBCUTANEOUS; 20 MG, 1 IN 1 M, SUBCUTANEOUS
     Route: 058
     Dates: start: 20050427, end: 20050531
  2. HUMIRA [Suspect]
     Indication: RHEUMATOID ARTHRITIS
     Dosage: 20 MG, 1 IN 1 M, SUBCUTANEOUS; 40 MG, 1IN 2 WK, SUBCUTANEOUS; 20 MG, 1 IN 1 M, SUBCUTANEOUS
     Route: 058
     Dates: start: 20050614, end: 20050614
  3. HUMIRA [Suspect]
     Indication: RHEUMATOID ARTHRITIS
     Dosage: 20 MG, 1 IN 1 M, SUBCUTANEOUS; 40 MG, 1IN 2 WK, SUBCUTANEOUS; 20 MG, 1 IN 1 M, SUBCUTANEOUS
     Route: 058
     Dates: start: 20050714
  4. LORAZEPAM [Concomitant]
  5. PREDNISONE [Concomitant]
  6. FUROSEMIDE [Concomitant]
  7. ESTROGENS [Concomitant]
  8. . [Concomitant]
  9. OXYCODONE HCL [Concomitant]

REACTIONS (2)
  - DYSPNOEA [None]
  - HYPERHIDROSIS [None]
